FAERS Safety Report 5258813-2 (Version None)
Quarter: 2007Q1

REPORT INFORMATION
  Report Type: 
  Country: None (occurrence: None)
  Receive Date: 20070306
  Receipt Date: 20070306
  Transmission Date: 20070707
  Serious: Yes (Other)
  Sender: FDA-Public Use
  Company Number: None

PATIENT
  Age: 48 Year
  Sex: Male
  Weight: 71.6683 kg

DRUGS (1)
  1. OXYBUTYNIN PROCURRED AT KAISER SANTA TERESA [Suspect]
     Indication: POLLAKIURIA
     Dosage: ONE TABLET BEFORE BED PO
     Route: 048
     Dates: start: 20070221, end: 20070302

REACTIONS (12)
  - DEPRESSION [None]
  - DRY EYE [None]
  - DRY MOUTH [None]
  - DRY SKIN [None]
  - EYE SWELLING [None]
  - FAMILY STRESS [None]
  - FEELING OF DESPAIR [None]
  - LOSS OF LIBIDO [None]
  - MOOD ALTERED [None]
  - OCULAR HYPERAEMIA [None]
  - POLLAKIURIA [None]
  - SPEECH DISORDER [None]
